FAERS Safety Report 23505861 (Version 2)
Quarter: 2024Q1

REPORT INFORMATION
  Report Type: Spontaneous
  Country: US (occurrence: US)
  Receive Date: 20240209
  Receipt Date: 20240313
  Transmission Date: 20240410
  Serious: Yes (Other)
  Sender: FDA-Public Use
  Company Number: US-AUROBINDO-AUR-APL-2024-005501

PATIENT
  Age: 82 Year
  Sex: Female
  Weight: 51.7 kg

DRUGS (1)
  1. CLINDAMYCIN HYDROCHLORIDE [Suspect]
     Active Substance: CLINDAMYCIN HYDROCHLORIDE
     Indication: Infection
     Dosage: UNK, FOUR TIMES/DAY
     Route: 048
     Dates: start: 20240123, end: 20240128

REACTIONS (2)
  - Foreign body in throat [Unknown]
  - Product size issue [Unknown]

NARRATIVE: CASE EVENT DATE: 20240123
